FAERS Safety Report 6634567-X (Version None)
Quarter: 2010Q1

REPORT INFORMATION
  Report Type: 
  Country: None (occurrence: None)
  Receive Date: 20100312
  Receipt Date: 20100312
  Transmission Date: 20100710
  Serious: No
  Sender: FDA-Public Use
  Company Number: None

PATIENT
  Sex: Female

DRUGS (2)
  1. VISINE EYE DROPS [Suspect]
     Indication: DRY EYE
     Dates: start: 20100201
  2. VISINE EYE DROPS [Suspect]
     Indication: OCULAR HYPERAEMIA
     Dates: start: 20100201

REACTIONS (7)
  - EXCESSIVE EYE BLINKING [None]
  - EYE IRRITATION [None]
  - EYE PAIN [None]
  - LACRIMATION INCREASED [None]
  - MYDRIASIS [None]
  - OCULAR HYPERAEMIA [None]
  - VISION BLURRED [None]
